FAERS Safety Report 8204848-7 (Version None)
Quarter: 2012Q1

REPORT INFORMATION
  Report Type: 
  Country: None (occurrence: None)
  Receive Date: 20120313
  Receipt Date: 20120228
  Transmission Date: 20120608
  Serious: Yes (Other)
  Sender: FDA-Public Use
  Company Number: JP-MYLANLABS-2012S1004952

PATIENT
  Age: 59 Year
  Sex: Male
  Weight: 72 kg

DRUGS (5)
  1. MEROPENEM [Concomitant]
     Indication: PNEUMONIA
     Route: 041
     Dates: start: 20120130, end: 20120202
  2. VANCOMYCIN [Suspect]
     Indication: PNEUMONIA
     Route: 041
     Dates: start: 20120125, end: 20120216
  3. ZOSYN [Suspect]
     Route: 041
     Dates: start: 20120208, end: 20120220
  4. HEPARIN SODIUM [Suspect]
     Indication: PNEUMONIA
     Route: 041
     Dates: start: 20120123, end: 20120127
  5. ZOSYN [Suspect]
     Indication: PNEUMONIA
     Route: 041
     Dates: start: 20120123, end: 20120127

REACTIONS (1)
  - HEPATIC FUNCTION ABNORMAL [None]
